FAERS Safety Report 7505358-2 (Version None)
Quarter: 2011Q2

REPORT INFORMATION
  Report Type: 
  Country: None (occurrence: None)
  Receive Date: 20110420
  Receipt Date: 20110224
  Transmission Date: 20111010
  Serious: Yes (Hospitalization)
  Sender: FDA-Public Use
  Company Number: PNT2-2010-00006

PATIENT
  Age: 45 Year
  Sex: Female
  Weight: 70.3 kg

DRUGS (4)
  1. PROCHLORPERAZINE MALEATE [Concomitant]
  2. TYLENOL /00020001/ (PARACETAMOL) [Concomitant]
  3. SPD476 VS PLACEBO (CODE NOT BROKEN) TABLET [Suspect]
     Indication: DIVERTICULITIS
     Dosage: 1X/DAY:QD, ORAL
     Route: 048
     Dates: start: 20081110, end: 20100130
  4. DILAUDID [Concomitant]

REACTIONS (1)
  - PANCREATITIS [None]
